FAERS Safety Report 15258001 (Version 1)
Quarter: 2018Q3

REPORT INFORMATION
  Report Type: Spontaneous
  Country: US (occurrence: US)
  Receive Date: 20180808
  Receipt Date: 20180808
  Transmission Date: 20181010
  Serious: No
  Sender: FDA-Public Use
  Company Number: US-ELI_LILLY_AND_COMPANY-US201808003907

PATIENT
  Sex: Male

DRUGS (3)
  1. HUMATROPE [Suspect]
     Active Substance: SOMATROPIN
     Indication: GROWTH HORMONE DEFICIENCY
     Dosage: 1.8 MG, UNKNOWN
     Route: 065
     Dates: start: 201801
  2. HUMATROPE [Suspect]
     Active Substance: SOMATROPIN
     Dosage: 2.3 MG, UNKNOWN
     Route: 065
  3. HUMATROPE [Suspect]
     Active Substance: SOMATROPIN
     Dosage: 1.8 MG, UNKNOWN
     Route: 065
     Dates: start: 201801

REACTIONS (1)
  - Weight increased [Unknown]
